FAERS Safety Report 9989266 (Version 2)
Quarter: 2015Q2

REPORT INFORMATION
  Report Type: Spontaneous
  Country: US (occurrence: US)
  Receive Date: 20140310
  Receipt Date: 20150514
  Transmission Date: 20150821
  Serious: Yes (Hospitalization)
  Sender: FDA-Public Use
  Company Number: US-BAYER-2014-035444

PATIENT
  Age: 50 Year
  Sex: Female
  Weight: 78 kg

DRUGS (22)
  1. EXCEDRIN MIGRAINE [Concomitant]
     Active Substance: ACETAMINOPHEN\ASPIRIN\CAFFEINE
     Indication: MIGRAINE
     Dosage: EVERYDAY
     Dates: start: 20120831
  2. MONTELUKAST [Concomitant]
     Active Substance: MONTELUKAST SODIUM
     Dosage: 10 MG, QD
     Route: 048
     Dates: start: 20120904, end: 20121002
  3. METFORMIN [Concomitant]
     Active Substance: METFORMIN HYDROCHLORIDE
     Dosage: 500 MG, BID
     Route: 048
     Dates: start: 20120924, end: 20121008
  4. YAZ [Suspect]
     Active Substance: DROSPIRENONE\ETHINYL ESTRADIOL
     Indication: PREMENSTRUAL SYNDROME
     Dosage: UNK
     Dates: start: 200807, end: 201006
  5. BOOSTRIX [DIPHTHERIA AND TETANUS TOXOIDS AND PERTUSSIS] [Concomitant]
     Dosage: 0.5 ML, PRN
     Dates: start: 20120910
  6. DIPHENOXYLATE [Concomitant]
     Active Substance: DIPHENOXYLATE
     Indication: DIARRHOEA
     Dosage: 2.5 TO 0.025 MG TABLET EVERY 4 HOURS AS NEEDED
     Route: 048
     Dates: start: 20121003
  7. ONDANSETRON [Concomitant]
     Active Substance: ONDANSETRON
     Indication: NAUSEA
     Dosage: 4 MG, EVERY 8 HOURS AS NEEDED
     Route: 048
     Dates: start: 20121002
  8. ONDANSETRON [Concomitant]
     Active Substance: ONDANSETRON
     Indication: NAUSEA
     Dosage: 4 MG EVERY 8 HOURS AS NEEDED
     Route: 048
     Dates: start: 20121003
  9. OMEGA-3 FATTY ACIDS [Concomitant]
     Active Substance: OMEGA-3 FATTY ACIDS
     Dosage: 500 MG, TID
     Route: 048
     Dates: start: 20120831, end: 20121008
  10. CALCIUM +VIT D [Concomitant]
     Active Substance: CALCIUM\VITAMIN D
     Dosage: UNK
     Route: 048
     Dates: start: 20120831, end: 20121008
  11. ALBUTEROL. [Concomitant]
     Active Substance: ALBUTEROL
     Indication: WHEEZING
     Dosage: 1-2 PUFFS EVERY 4-6 HOUR AS NEEDED
     Dates: start: 20120805, end: 20120910
  12. CETRIZIN [Concomitant]
     Dosage: 10 MG, QD
     Route: 048
     Dates: start: 20120831, end: 20121003
  13. EPIPEN [Concomitant]
     Active Substance: EPINEPHRINE
     Dosage: 0.3 ML, PRN
     Dates: start: 20120803
  14. EPIPEN [Concomitant]
     Active Substance: EPINEPHRINE
     Dosage: 0.3 ML, PRN
     Route: 030
     Dates: start: 20120831, end: 20121003
  15. TOBRAMYCIN. [Concomitant]
     Active Substance: TOBRAMYCIN
     Dosage: 1 DROP TO EYE EVERY 2 HOURS
     Route: 047
     Dates: start: 20120831, end: 20120924
  16. MONTELUKAST [Concomitant]
     Active Substance: MONTELUKAST SODIUM
     Dosage: 10 MG, QD
     Route: 048
     Dates: start: 20120831, end: 20121002
  17. GIANVI [Suspect]
     Active Substance: DROSPIRENONE\ETHINYL ESTRADIOL
     Indication: PREMENSTRUAL SYNDROME
     Dosage: UNK
     Dates: start: 201006, end: 201210
  18. ALBUTEROL. [Concomitant]
     Active Substance: ALBUTEROL
     Indication: WHEEZING
     Dosage: 4 TIMES DAILY FOR THE NEXT 2 DAYS, THEN 3 TIMES DAILY FOR 2 DAYS, THEN TWICE DAILY FOR 2 DAYS, THEN
     Dates: start: 20120705
  19. SINGULAIR [Concomitant]
     Active Substance: MONTELUKAST SODIUM
     Dosage: 10 MG, QD
     Route: 048
     Dates: start: 20120708, end: 20120803
  20. IRON SUPPLEMENT [Concomitant]
     Active Substance: IRON
     Dosage: 325 MG, BID
     Dates: start: 20120924
  21. PREDNISONE. [Concomitant]
     Active Substance: PREDNISONE
     Indication: ANTIINFLAMMATORY THERAPY
     Dosage: 40 MG, QD FOR 5 DAYS
     Dates: start: 20120705
  22. IRON [Concomitant]
     Active Substance: IRON
     Dosage: UNK UNK, QD
     Route: 048
     Dates: start: 20120831, end: 20121008

REACTIONS (12)
  - Pain [None]
  - Anxiety [None]
  - Injury [None]
  - Hypoaesthesia [None]
  - Product use issue [None]
  - Abdominal pain [None]
  - Cerebrovascular accident [None]
  - Dizziness [None]
  - Asthenia [None]
  - General physical health deterioration [None]
  - Emotional distress [None]
  - Psychological trauma [None]

NARRATIVE: CASE EVENT DATE: 201210
